FAERS Safety Report 6645511-3 (Version None)
Quarter: 2010Q1

REPORT INFORMATION
  Report Type: 
  Country: None (occurrence: None)
  Receive Date: 20100323
  Receipt Date: 20100311
  Transmission Date: 20100710
  Serious: No
  Sender: FDA-Public Use
  Company Number: US-BIOGENIDEC-2008BI029043

PATIENT
  Age: 38 Year
  Sex: Female

DRUGS (3)
  1. AVONEX [Suspect]
     Indication: MULTIPLE SCLEROSIS
     Route: 030
     Dates: start: 19960330, end: 19961201
  2. AVONEX [Suspect]
     Route: 030
     Dates: end: 20010701
  3. AVONEX [Suspect]
     Route: 030
     Dates: start: 20090415, end: 20091101

REACTIONS (1)
  - ANTEPARTUM HAEMORRHAGE [None]
